FAERS Safety Report 7492422-X (Version None)
Quarter: 2011Q2

REPORT INFORMATION
  Report Type: 
  Country: None (occurrence: None)
  Receive Date: 20110519
  Receipt Date: 20110513
  Transmission Date: 20111010
  Serious: Yes (Death)
  Sender: FDA-Public Use
  Company Number: CA-ROXANE LABORATORIES, INC.-2011-RO-00666RO

PATIENT
  Sex: Male

DRUGS (2)
  1. DIAZEPAM [Suspect]
  2. METHADONE HCL [Suspect]
     Indication: DRUG DEPENDENCE

REACTIONS (1)
  - HEAD INJURY [None]
